FAERS Safety Report 17198909 (Version 2)
Quarter: 2020Q2

REPORT INFORMATION
  Report Type: Spontaneous
  Country: JP (occurrence: JP)
  Receive Date: 20191225
  Receipt Date: 20200413
  Transmission Date: 20200713
  Serious: Yes (Other)
  Sender: FDA-Public Use
  Company Number: NVSJ2019JP005897

PATIENT
  Age: 51 Year
  Sex: Female

DRUGS (1)
  1. AFINITOR [Suspect]
     Active Substance: EVEROLIMUS
     Indication: RENAL NEOPLASM
     Dosage: UNK
     Route: 048
     Dates: start: 201604

REACTIONS (6)
  - Metastases to bone [Not Recovered/Not Resolved]
  - Interstitial lung disease [Unknown]
  - Metastases to kidney [Unknown]
  - Metastases to liver [Recovering/Resolving]
  - Malignant neoplasm progression [Recovering/Resolving]
  - Metastases to lung [Recovering/Resolving]
